FAERS Safety Report 9128799 (Version 2)
Quarter: 2013Q3

REPORT INFORMATION
  Report Type: Report from Study
  Country: US (occurrence: US)
  Receive Date: 20130228
  Receipt Date: 20130805
  Transmission Date: 20140515
  Serious: Yes (Hospitalization, Other)
  Sender: FDA-Public Use
  Company Number: US-ELI_LILLY_AND_COMPANY-US201205007945

PATIENT
  Age: 81 Year
  Sex: Female

DRUGS (16)
  1. TERIPARATIDE [Suspect]
     Dosage: 20 UG, QD
     Dates: start: 20111006
  2. TERIPARATIDE [Suspect]
     Dosage: 20 UG, QD
     Dates: end: 20120619
  3. TERIPARATIDE [Suspect]
     Dosage: 20 UG, QD
     Dates: start: 20121116
  4. TERIPARATIDE [Suspect]
     Dosage: 20 UG, QD
  5. ARTHROTEC [Concomitant]
     Dosage: UNK
     Dates: end: 20120619
  6. ARTHROTEC [Concomitant]
     Dosage: UNK
     Dates: start: 201207
  7. PLAQUENIL [Concomitant]
     Dosage: UNK
     Dates: end: 20120619
  8. PLAQUENIL [Concomitant]
     Dosage: UNK
     Dates: start: 201207
  9. PREDNISONE [Concomitant]
     Dosage: UNK
     Dates: end: 20120619
  10. PREDNISONE [Concomitant]
     Dosage: UNK
     Dates: start: 201207
  11. FOLIC ACID [Concomitant]
     Dosage: UNK
     Dates: end: 20120619
  12. FOLIC ACID [Concomitant]
     Dosage: UNK
     Dates: start: 201207
  13. METOPROLOL [Concomitant]
     Dosage: UNK
     Dates: end: 20120619
  14. METOPROLOL [Concomitant]
     Dosage: UNK
     Dates: start: 201207
  15. SIMVASTATIN [Concomitant]
     Dosage: UNK
     Dates: end: 20120619
  16. SIMVASTATIN [Concomitant]
     Dosage: UNK
     Dates: start: 201207

REACTIONS (14)
  - Appendicitis perforated [Unknown]
  - Abscess intestinal [Unknown]
  - Myocardial infarction [Unknown]
  - Blindness unilateral [Not Recovered/Not Resolved]
  - Eye inflammation [Unknown]
  - Optic nerve injury [Unknown]
  - Groin pain [Unknown]
  - Musculoskeletal pain [Unknown]
  - Pain [Unknown]
  - Arthralgia [Unknown]
  - Sciatica [Unknown]
  - Back pain [Unknown]
  - Pain in extremity [Unknown]
  - Arthralgia [Unknown]
